FAERS Safety Report 6554942-1 (Version None)
Quarter: 2010Q1

REPORT INFORMATION
  Report Type: 
  Country: None (occurrence: None)
  Receive Date: 20100126
  Receipt Date: 20100112
  Transmission Date: 20100710
  Serious: Yes (Other)
  Sender: FDA-Public Use
  Company Number: 8054183

PATIENT
  Sex: Male

DRUGS (2)
  1. KEPPRA [Suspect]
     Indication: CONVULSION
     Dosage: (1000 MG, DAILY), (250 MG BID)
  2. LACOSAMIDE [Concomitant]

REACTIONS (5)
  - DECREASED APPETITE [None]
  - GENERAL PHYSICAL HEALTH DETERIORATION [None]
  - NEOPLASM RECURRENCE [None]
  - PARAESTHESIA [None]
  - WEIGHT DECREASED [None]
